FAERS Safety Report 5498423-5 (Version None)
Quarter: 2007Q4

REPORT INFORMATION
  Report Type: 
  Country: None (occurrence: None)
  Receive Date: 20071024
  Receipt Date: 20071016
  Transmission Date: 20080405
  Serious: Yes (Other)
  Sender: FDA-Public Use
  Company Number: 2007SP020974

PATIENT
  Sex: Female
  Weight: 92.9874 kg

DRUGS (2)
  1. PEG-INTRON [Suspect]
     Indication: HEPATITIS C
     Dosage: ; SC
     Route: 058
     Dates: start: 20050101, end: 20050101
  2. RIBAVIRIN [Suspect]
     Indication: HEPATITIS C
     Dosage: ; PO
     Route: 048
     Dates: start: 20050101, end: 20050101

REACTIONS (5)
  - DECREASED APPETITE [None]
  - DEPRESSION [None]
  - MITRAL VALVE PROLAPSE [None]
  - THYROID DISORDER [None]
  - WEIGHT DECREASED [None]
